FAERS Safety Report 9438777 (Version 3)
Quarter: 2013Q4

REPORT INFORMATION
  Report Type: Report from Study
  Country: US (occurrence: US)
  Receive Date: 20130802
  Receipt Date: 20131023
  Transmission Date: 20140711
  Serious: Yes (Hospitalization)
  Sender: FDA-Public Use
  Company Number: US-PFIZER INC-2013226171

PATIENT
  Age: 40 Year
  Sex: Female
  Weight: 113 kg

DRUGS (6)
  1. TOFACITINIB CITRATE [Suspect]
     Indication: PSORIASIS
     Dosage: 5 MG, 2X/DAY
     Route: 048
     Dates: start: 20110725, end: 20120629
  2. FUROSEMIDE [Concomitant]
     Indication: HYPERTENSION
     Dosage: 40 MG, 1X/DAY
     Route: 048
     Dates: start: 2003
  3. GALENIC /BISOPROLOL/HYDROCHLOROTHIAZIDE/ [Concomitant]
     Indication: HYPERTENSION
     Dosage: 0.25 MG, 1X/DAY
     Route: 048
     Dates: start: 2003
  4. DESOGEN [Concomitant]
     Indication: CONTRACEPTION
     Dosage: 1 QD
     Route: 048
     Dates: start: 2001
  5. CALCIUM WITH VITAMIN D [Concomitant]
     Indication: SUPPLEMENTATION THERAPY
     Dosage: 600 MG, 1X/DAY
     Route: 048
     Dates: start: 2003
  6. POTASSIUM [Concomitant]
     Indication: SUPPLEMENTATION THERAPY
     Dosage: QD
     Route: 048
     Dates: start: 2003

REACTIONS (2)
  - Pustular psoriasis [Recovered/Resolved]
  - Skin infection [Recovered/Resolved]
